FAERS Safety Report 7199798-1 (Version None)
Quarter: 2010Q4

REPORT INFORMATION
  Report Type: 
  Country: None (occurrence: None)
  Receive Date: 20101228
  Receipt Date: 20101126
  Transmission Date: 20110411
  Serious: Yes (Other)
  Sender: FDA-Public Use
  Company Number: FR-PFIZER INC-2010158233

PATIENT
  Age: 16 Year
  Sex: Male
  Weight: 73 kg

DRUGS (3)
  1. ADVIL [Suspect]
     Indication: DYSPHAGIA
     Dosage: 400 MG, 4X/DAY
     Route: 048
     Dates: start: 20101002, end: 20101004
  2. ADVIL [Suspect]
     Indication: PYREXIA
  3. ADVIL [Suspect]
     Indication: OROPHARYNGEAL PAIN

REACTIONS (4)
  - BACTERIAL INFECTION [None]
  - ENTEROVIRUS INFECTION [None]
  - STOMATITIS [None]
  - WEIGHT DECREASED [None]
